FAERS Safety Report 22229077 (Version 1)
Quarter: 2023Q2

REPORT INFORMATION
  Report Type: Spontaneous
  Country: HU (occurrence: HU)
  Receive Date: 20230419
  Receipt Date: 20230419
  Transmission Date: 20230722
  Serious: Yes (Death)
  Sender: FDA-Public Use
  Company Number: HU-AMGEN-HUNSP2023062367

PATIENT
  Age: 76 Year
  Sex: Female
  Weight: 72 kg

DRUGS (6)
  1. XGEVA [Suspect]
     Active Substance: DENOSUMAB
     Indication: Metastases to bone
     Dosage: 120 MILLIGRAM
     Route: 058
     Dates: start: 20230201, end: 20230201
  2. CAPECITABINE [Suspect]
     Active Substance: CAPECITABINE
     Indication: Adenocarcinoma gastric
     Dosage: 3500 MILLIGRAM, QD 1500 MG IN THE MORNING AND 2000 MG IN THE EVENING
     Route: 048
     Dates: start: 20230202
  3. OXALIPLATIN [Suspect]
     Active Substance: OXALIPLATIN
     Indication: Adenocarcinoma gastric
     Dosage: 234 MILLIGRAM
     Route: 042
     Dates: start: 20230201, end: 20230201
  4. RYTMONORMA [Concomitant]
     Dosage: 300 MILLIGRAM, Q12H
  5. LAVESTRA [Concomitant]
  6. ENOXAPARIN SODIUM [Concomitant]
     Active Substance: ENOXAPARIN SODIUM

REACTIONS (8)
  - Cognitive disorder [Fatal]
  - General physical health deterioration [Fatal]
  - Condition aggravated [Fatal]
  - Asthenia [Fatal]
  - Dysphagia [Fatal]
  - Vomiting [Recovered/Resolved]
  - Hypertension [Recovered/Resolved]
  - Dizziness [Recovered/Resolved]

NARRATIVE: CASE EVENT DATE: 20230201
